FAERS Safety Report 14721467 (Version 2)
Quarter: 2019Q2

REPORT INFORMATION
  Report Type: Spontaneous
  Country: US (occurrence: US)
  Receive Date: 20180405
  Receipt Date: 20190401
  Transmission Date: 20190711
  Serious: Yes (Other)
  Sender: FDA-Public Use
  Company Number: US-GLAXOSMITHKLINE-US2018GSK058109

PATIENT
  Sex: Male

DRUGS (3)
  1. PREVACID [Suspect]
     Active Substance: LANSOPRAZOLE
     Indication: PRODUCT USED FOR UNKNOWN INDICATION
     Dosage: UNK
     Route: 065
  2. OMEPRAZOLE. [Suspect]
     Active Substance: OMEPRAZOLE
     Indication: PRODUCT USED FOR UNKNOWN INDICATION
     Dosage: 20 MG, QD
     Route: 048
  3. PREVACID [Suspect]
     Active Substance: LANSOPRAZOLE
     Indication: PRODUCT USED FOR UNKNOWN INDICATION
     Dosage: UNK
     Route: 065

REACTIONS (14)
  - Dialysis [Unknown]
  - Renal cancer [Unknown]
  - Congenital cystic kidney disease [Unknown]
  - Renal failure [Unknown]
  - Renal mass [Unknown]
  - Acute kidney injury [Unknown]
  - Renal cyst [Unknown]
  - End stage renal disease [Unknown]
  - Renal disorder [Unknown]
  - Single functional kidney [Unknown]
  - Neoplasm malignant [Unknown]
  - Chronic kidney disease [Unknown]
  - Nephrectomy [Unknown]
  - Renal cell carcinoma [Unknown]
